FAERS Safety Report 24383513 (Version 1)
Quarter: 2024Q4

REPORT INFORMATION
  Report Type: Spontaneous
  Country: BG (occurrence: BG)
  Receive Date: 20241001
  Receipt Date: 20241001
  Transmission Date: 20250115
  Serious: Yes (Death)
  Sender: ASTELLAS
  Company Number: BG-ASTELLAS-2024-AER-009631

PATIENT
  Age: 64 Year

DRUGS (1)
  1. PADCEV [Suspect]
     Active Substance: ENFORTUMAB VEDOTIN-EJFV
     Indication: Bladder transitional cell carcinoma metastatic
     Dosage: W1D1 (WEEK 1 DAY 1)
     Route: 050
     Dates: start: 20240412, end: 20240530

REACTIONS (1)
  - Death [Fatal]
